FAERS Safety Report 12596021 (Version 1)
Quarter: 2016Q3

REPORT INFORMATION
  Report Type: Report from Study
  Country: US (occurrence: US)
  Receive Date: 20160726
  Receipt Date: 20160726
  Transmission Date: 20161109
  Serious: No
  Sender: FDA-Public Use
  Company Number: US-AMGEN-USASL2016037462

PATIENT
  Age: 75 Year
  Sex: Female

DRUGS (4)
  1. REVLIMID [Concomitant]
     Active Substance: LENALIDOMIDE
     Dosage: UNK
  2. KYPROLIS [Suspect]
     Active Substance: CARFILZOMIB
     Indication: PLASMA CELL MYELOMA
     Dosage: UNK
     Route: 065
  3. DEXAMETHASONE. [Concomitant]
     Active Substance: DEXAMETHASONE
     Dosage: UNK
  4. KYPROLIS [Suspect]
     Active Substance: CARFILZOMIB
     Dosage: THURSDAY AND FRIDAYS
     Route: 065

REACTIONS (10)
  - Asthenia [Unknown]
  - Pruritus [Unknown]
  - Rash [Recovering/Resolving]
  - Pain [Unknown]
  - Fatigue [Not Recovered/Not Resolved]
  - Restless legs syndrome [Unknown]
  - Peripheral swelling [Not Recovered/Not Resolved]
  - Neuralgia [Unknown]
  - Dizziness [Not Recovered/Not Resolved]
  - Platelet count decreased [Unknown]
